FAERS Safety Report 8003198-1 (Version None)
Quarter: 2011Q4

REPORT INFORMATION
  Report Type: 
  Country: None (occurrence: None)
  Receive Date: 20111222
  Receipt Date: 20111215
  Transmission Date: 20120403
  Serious: Yes (Other)
  Sender: FDA-Public Use
  Company Number: PHEH2011US011812

PATIENT
  Sex: Male

DRUGS (1)
  1. AREDIA [Suspect]

REACTIONS (10)
  - ATRIAL FIBRILLATION [None]
  - VENOUS OCCLUSION [None]
  - DRY MOUTH [None]
  - ATELECTASIS [None]
  - HERPES SIMPLEX [None]
  - LUNG NEOPLASM [None]
  - HYPERGLYCAEMIA [None]
  - ENTEROCOCCAL INFECTION [None]
  - GASTROOESOPHAGEAL REFLUX DISEASE [None]
  - RENAL FAILURE [None]
